FAERS Safety Report 4521572-2 (Version None)
Quarter: 2004Q4

REPORT INFORMATION
  Report Type: 
  Country: None (occurrence: None)
  Receive Date: 20041206
  Receipt Date: 20040910
  Transmission Date: 20050328
  Serious: Yes (Other)
  Sender: FDA-Public Use
  Company Number: 200408178

PATIENT
  Age: 5 Year
  Sex: Female
  Weight: 17.2367 kg

DRUGS (8)
  1. BOTOX [Suspect]
     Indication: MUSCLE SPASTICITY
     Dosage: 380 UNITS DAILY IM
     Route: 030
     Dates: start: 20040201
  2. TRILEPTAL [Concomitant]
  3. COENZYME Q10 [Concomitant]
  4. VITAMIN C [Concomitant]
  5. VITAMIN B-12 [Concomitant]
  6. CAROTENE [Concomitant]
  7. VITAMINE E [Concomitant]
  8. MULTIVITAMIN INFUSION (MVI) [Concomitant]

REACTIONS (16)
  - ARTHROPATHY [None]
  - CONVULSION [None]
  - DRUG LEVEL INCREASED [None]
  - DYSKINESIA [None]
  - FACIAL PARESIS [None]
  - FALL [None]
  - GAIT DISTURBANCE [None]
  - GAZE PALSY [None]
  - GRIP STRENGTH DECREASED [None]
  - HYPOTONIA [None]
  - JOINT STIFFNESS [None]
  - MUSCLE TWITCHING [None]
  - MUSCULAR WEAKNESS [None]
  - POSTURE ABNORMAL [None]
  - SALIVARY HYPERSECRETION [None]
  - SPEECH DISORDER [None]
